FAERS Safety Report 5858491-5 (Version None)
Quarter: 2008Q3

REPORT INFORMATION
  Report Type: 
  Country: None (occurrence: None)
  Receive Date: 20080822
  Receipt Date: 20080807
  Transmission Date: 20090109
  Serious: Yes (Life-Threatening, Hospitalization, Other)
  Sender: FDA-Public Use
  Company Number: 2008EU000887

PATIENT
  Age: 43 Year
  Sex: Female

DRUGS (3)
  1. TACROLIMUS [Suspect]
     Indication: UVEITIS
     Dosage: UNKNOWN/D, UNKOWN
     Dates: end: 20060101
  2. MYCOPHENOLATE MOFETIL [Concomitant]
  3. PREDNISONE [Concomitant]

REACTIONS (24)
  - ANOREXIA [None]
  - BLISTER [None]
  - CACHEXIA [None]
  - CARDIOGENIC SHOCK [None]
  - CARDIOMEGALY [None]
  - CELLULITIS [None]
  - HYPERTENSION [None]
  - MITRAL VALVE INCOMPETENCE [None]
  - MYCOBACTERIUM CHELONEI INFECTION [None]
  - NAUSEA [None]
  - OEDEMA [None]
  - OFF LABEL USE [None]
  - OSTEOPOROTIC FRACTURE [None]
  - PAIN IN EXTREMITY [None]
  - PLEURAL EFFUSION [None]
  - PNEUMONIA [None]
  - POLYCYTHAEMIA [None]
  - SKIN DISCOLOURATION [None]
  - SKIN LESION [None]
  - SPINAL COMPRESSION FRACTURE [None]
  - SUBCUTANEOUS NODULE [None]
  - URINARY TRACT INFECTION [None]
  - WEIGHT DECREASED [None]
  - WHITE BLOOD CELL COUNT INCREASED [None]
